FAERS Safety Report 18005867 (Version 1)
Quarter: 2020Q3

REPORT INFORMATION
  Report Type: Spontaneous
  Country: FR (occurrence: FR)
  Receive Date: 20200710
  Receipt Date: 20200710
  Transmission Date: 20201103
  Serious: Yes (Other)
  Sender: FDA-Public Use
  Company Number: NVSC2020FR191085

PATIENT
  Age: 29 Year
  Sex: Female

DRUGS (1)
  1. METFORMIN [Suspect]
     Active Substance: METFORMIN HYDROCHLORIDE
     Indication: INFERTILITY
     Dosage: UNK (RECEIVED METFORMIN FOR SOME YEARS (DOSE UNSPECIFED))
     Route: 065

REACTIONS (3)
  - Off label use [Unknown]
  - Colorectal cancer stage IV [Unknown]
  - Metastases to liver [Unknown]
